FAERS Safety Report 4673985-6 (Version None)
Quarter: 2005Q2

REPORT INFORMATION
  Report Type: 
  Country: None (occurrence: None)
  Receive Date: 20050525
  Receipt Date: 20050426
  Transmission Date: 20051028
  Serious: Yes (Hospitalization)
  Sender: FDA-Public Use
  Company Number: NL-YAMANOUCHI-YEHQ20050495

PATIENT
  Age: 85 Year
  Sex: Male

DRUGS (6)
  1. VESICARE [Suspect]
     Dosage: 5 MG QD PO
     Route: 048
     Dates: start: 20050318, end: 20050322
  2. SPIRIVA            ^BOEHRINGER INGELHEIM^ [Concomitant]
  3. SERETIDE                     ^ALLEN + HANBURYS LTD^ [Concomitant]
  4. COTRIMOXAZOL FORTE [Concomitant]
  5. ACETYLSALICYLZUUR [Concomitant]
  6. FUROSEMIDE [Concomitant]

REACTIONS (2)
  - RENAL FAILURE [None]
  - URINARY RETENTION [None]
